FAERS Safety Report 6822470-1 (Version None)
Quarter: 2010Q3

REPORT INFORMATION
  Report Type: 
  Country: None (occurrence: None)
  Receive Date: 20100708
  Receipt Date: 20100705
  Transmission Date: 20110219
  Serious: Yes (Other)
  Sender: FDA-Public Use
  Company Number: JP-BAYER-201010602BYL

PATIENT
  Age: 72 Year
  Sex: Male
  Weight: 58 kg

DRUGS (3)
  1. ASPIRIN [Suspect]
     Indication: CEREBRAL INFARCTION
     Dosage: TOTAL DAILY DOSE: 100 MG  UNIT DOSE: 100 MG
     Route: 048
     Dates: start: 20091014, end: 20091211
  2. CEROCRAL [Suspect]
     Indication: CEREBRAL INFARCTION
     Dosage: UNIT DOSE: 20 MG
     Route: 048
     Dates: start: 20091014, end: 20091209
  3. ALINAMIN-F [Suspect]
     Indication: MUSCLE SPASMS
     Dosage: UNIT DOSE: 25 MG
     Route: 048
     Dates: start: 20090818, end: 20091209

REACTIONS (1)
  - CHOLESTASIS [None]
